FAERS Safety Report 8795006 (Version 1)
Quarter: 2012Q4

REPORT INFORMATION
  Report Type: 
  Country: KE (occurrence: KE)
  Receive Date: 20120918
  Receipt Date: 20120918
  Transmission Date: 20130627
  Serious: Yes (Death, Hospitalization, Other)
  Sender: FDA-Public Use
  Company Number: PHHY2005KE007367

PATIENT
  Sex: Male

DRUGS (1)
  1. GLIVEC [Suspect]
     Indication: CHRONIC MYELOID LEUKAEMIA
     Dates: start: 20050324

REACTIONS (4)
  - Chronic myeloid leukaemia [Fatal]
  - Myelofibrosis [Unknown]
  - Splenomegaly [Not Recovered/Not Resolved]
  - Bone pain [Not Recovered/Not Resolved]
